FAERS Safety Report 4474635-4 (Version None)
Quarter: 2004Q4

REPORT INFORMATION
  Report Type: 
  Country: None (occurrence: None)
  Receive Date: 20041012
  Receipt Date: 20040928
  Transmission Date: 20050328
  Serious: Yes (Other)
  Sender: FDA-Public Use
  Company Number: HQWYE463030SEP04

PATIENT
  Age: 65 Year
  Sex: Female

DRUGS (3)
  1. EFFEXOR [Suspect]
     Dosage: ^100 MG/DAY IN TWO SEPARATE DOSES^
  2. TRAMADOL HCL [Suspect]
     Indication: PAIN
     Dosage: ^300 MG DAILY IN THREE DOSES^, SEE IMAGE
  3. TRAMADOL HCL [Suspect]
     Indication: RIB FRACTURE
     Dosage: ^300 MG DAILY IN THREE DOSES^, SEE IMAGE

REACTIONS (2)
  - DRUG INTERACTION [None]
  - SEROTONIN SYNDROME [None]
